FAERS Safety Report 8045511-5 (Version None)
Quarter: 2012Q1

REPORT INFORMATION
  Report Type: 
  Country: None (occurrence: None)
  Receive Date: 20120113
  Receipt Date: 20120106
  Transmission Date: 20120608
  Serious: Yes (Other)
  Sender: FDA-Public Use
  Company Number: US-ROCHE-GNE324595

PATIENT
  Sex: Female

DRUGS (16)
  1. ACTIVASE [Suspect]
     Indication: PULMONARY EMBOLISM
     Dosage: 25  MG IN 500 ML
     Route: 042
     Dates: start: 20110911
  2. CEFDINIR [Concomitant]
     Route: 048
     Dates: start: 20110911, end: 20110913
  3. WARFARIN SODIUM [Concomitant]
     Route: 048
     Dates: start: 20110911, end: 20110912
  4. HEPARIN [Concomitant]
     Dosage: DRIP 25,000 UNITS
     Dates: start: 20110910, end: 20110914
  5. VICODIN [Concomitant]
     Indication: PAIN
     Dosage: 1 TAB
     Route: 048
  6. FLONASE [Concomitant]
     Indication: HYPERSENSITIVITY
     Dosage: 1 TAB
     Route: 048
     Dates: start: 20110911, end: 20110915
  7. LORAZEPAM [Concomitant]
     Dates: start: 20110912, end: 20110912
  8. WARFARIN SODIUM [Concomitant]
     Dates: start: 20110912, end: 20110914
  9. WARFARIN SODIUM [Concomitant]
     Dates: start: 20110914, end: 20110915
  10. XOPENEX [Concomitant]
     Dates: start: 20110912, end: 20110915
  11. HYDROMORPHONE HCL [Concomitant]
     Indication: PAIN
     Dosage: 0.5 - 1 MG
     Route: 042
     Dates: start: 20110911, end: 20110912
  12. LORAZEPAM [Concomitant]
     Indication: ANXIETY
     Dates: start: 20110911, end: 20110912
  13. ACTIVASE [Suspect]
     Indication: DEEP VEIN THROMBOSIS
  14. ZOFRAN [Concomitant]
     Indication: VOMITING
     Route: 042
     Dates: start: 20110911, end: 20110915
  15. ASTELIN [Concomitant]
     Indication: HYPERSENSITIVITY
     Dosage: 1 SPRAY
     Dates: start: 20110910, end: 20110915
  16. LORAZEPAM [Concomitant]
     Route: 048
     Dates: start: 20110913, end: 20110915

REACTIONS (2)
  - DRUG INEFFECTIVE [None]
  - BLOOD FIBRINOGEN ABNORMAL [None]
